FAERS Safety Report 18532498 (Version 1)
Quarter: 2020Q4

REPORT INFORMATION
  Report Type: Spontaneous
  Country: US (occurrence: US)
  Receive Date: 20201123
  Receipt Date: 20201123
  Transmission Date: 20210114
  Serious: No
  Sender: FDA-Public Use
  Company Number: US-SA-2020SA325728

PATIENT

DRUGS (18)
  1. FEROSUL [Concomitant]
     Active Substance: FERROUS SULFATE
  2. FLUTICASON [Concomitant]
     Active Substance: FLUTICASONE
  3. LISINOPRIL. [Concomitant]
     Active Substance: LISINOPRIL
  4. VITAMIN B12 [Concomitant]
     Active Substance: CYANOCOBALAMIN
  5. CETIRIZINE [Concomitant]
     Active Substance: CETIRIZINE HYDROCHLORIDE
  6. DOCUSATE SODIUM. [Concomitant]
     Active Substance: DOCUSATE SODIUM
  7. FOLIC ACID. [Concomitant]
     Active Substance: FOLIC ACID
  8. NITROGLYCERINE [Concomitant]
     Active Substance: NITROGLYCERIN
  9. CHLORTHALIDONE. [Concomitant]
     Active Substance: CHLORTHALIDONE
  10. HYDROCODONE BITARTRATE AND ACETAMINOPHEN [Concomitant]
     Active Substance: ACETAMINOPHEN\HYDROCODONE BITARTRATE
  11. OYSTER SHELL [Concomitant]
     Active Substance: OSTREA EDULIS SHELL
  12. LEVOTHYROXIN [Concomitant]
     Active Substance: LEVOTHYROXINE
  13. DUPIXENT [Suspect]
     Active Substance: DUPILUMAB
     Indication: MYOSITIS
     Dosage: 300 MG, QOW
     Route: 058
     Dates: start: 20191125
  14. ALLOPURINOL. [Concomitant]
     Active Substance: ALLOPURINOL
  15. GABAPENTIN. [Concomitant]
     Active Substance: GABAPENTIN
  16. LUMIGAN [Concomitant]
     Active Substance: BIMATOPROST
  17. OMEPRAZOLE. [Concomitant]
     Active Substance: OMEPRAZOLE
  18. VITAMIN D3 [Concomitant]
     Active Substance: CHOLECALCIFEROL

REACTIONS (7)
  - Condition aggravated [Not Recovered/Not Resolved]
  - Pruritus [Not Recovered/Not Resolved]
  - Chondropathy [Unknown]
  - Sleep deficit [Not Recovered/Not Resolved]
  - Product use in unapproved indication [Unknown]
  - Drug ineffective for unapproved indication [Unknown]
  - Ligament disorder [Unknown]

NARRATIVE: CASE EVENT DATE: 20191125
